FAERS Safety Report 17303552 (Version 2)
Quarter: 2020Q1

REPORT INFORMATION
  Report Type: Report from Study
  Country: US (occurrence: US)
  Receive Date: 20200122
  Receipt Date: 20200221
  Transmission Date: 20200409
  Serious: Yes (Hospitalization)
  Sender: FDA-Public Use
  Company Number: US-ACTELION-A-NJ2020-200766

PATIENT
  Sex: Female
  Weight: 79.37 kg

DRUGS (2)
  1. ADEMPAS [Concomitant]
     Active Substance: RIOCIGUAT
     Dosage: 1 MG
     Dates: start: 202001
  2. OPSUMIT [Suspect]
     Active Substance: MACITENTAN
     Indication: PULMONARY HYPERTENSION
     Dosage: 10 MG, QD
     Route: 048

REACTIONS (9)
  - Chest pain [Unknown]
  - Pulmonary arterial hypertension [Unknown]
  - Fluid retention [Unknown]
  - Diabetes mellitus [Unknown]
  - Dyspnoea at rest [Unknown]
  - Condition aggravated [Unknown]
  - Palpitations [Unknown]
  - Dyspnoea exertional [Unknown]
  - Viral infection [Unknown]
